FAERS Safety Report 20696188 (Version 1)
Quarter: 2022Q2

REPORT INFORMATION
  Report Type: Spontaneous
  Country: US (occurrence: None)
  Receive Date: 20220408
  Receipt Date: 20220408
  Transmission Date: 20220720
  Serious: Yes (Death)
  Sender: FDA-Public Use
  Company Number: None

PATIENT
  Age: 84 Year
  Sex: Male

DRUGS (13)
  1. METOPROLOL SUCCINATE [Suspect]
     Active Substance: METOPROLOL SUCCINATE
  2. ELIQUIS [Concomitant]
  3. PREDNISONE [Concomitant]
  4. FUROSEMIDE [Concomitant]
  5. NAMEDNA ER [Concomitant]
  6. TACROLIMUS [Concomitant]
  7. CARBIDOPA-LEVODOPA [Concomitant]
  8. MAGNESIUM OXIDE [Concomitant]
  9. FINASTERIDE [Concomitant]
  10. SODIUM BICARBONATE [Concomitant]
  11. PROMETHAZINE DM [Concomitant]
  12. CALCITRIOL [Concomitant]
  13. MEGESTROL ACETATE [Concomitant]

REACTIONS (1)
  - Death [None]

NARRATIVE: CASE EVENT DATE: 20220330
